FAERS Safety Report 9788784 (Version 4)
Quarter: 2014Q1

REPORT INFORMATION
  Report Type: Report from Study
  Country: BG (occurrence: BG)
  Receive Date: 20131230
  Receipt Date: 20140126
  Transmission Date: 20141002
  Serious: Yes (Life-Threatening)
  Sender: FDA-Public Use
  Company Number: BG-BRISTOL-MYERS SQUIBB COMPANY-19865146

PATIENT
  Age: 59 Year
  Sex: Male
  Weight: 84 kg

DRUGS (2)
  1. CETUXIMAB [Suspect]
     Indication: COLORECTAL CANCER METASTATIC
     Dosage: INF,INITIAL DOSE: 400MG/M2,MOST RECENT DOSE(62ND INF): 19NOV13
     Route: 042
     Dates: start: 20120917, end: 20131119
  2. IRINOTECAN [Suspect]
     Indication: COLORECTAL CANCER METASTATIC
     Dosage: INF,MOST RECENT DOSE(62ND INF): 19NOV13
     Route: 042
     Dates: start: 20120917

REACTIONS (1)
  - Pulmonary embolism [Recovered/Resolved]
